FAERS Safety Report 7811127-6 (Version None)
Quarter: 2011Q4

REPORT INFORMATION
  Report Type: 
  Country: None (occurrence: None)
  Receive Date: 20111013
  Receipt Date: 20111005
  Transmission Date: 20120403
  Serious: Yes (Other)
  Sender: FDA-Public Use
  Company Number: PHHY2011FR88855

PATIENT
  Sex: Female

DRUGS (2)
  1. MEDIATOR [Suspect]
     Indication: WEIGHT INCREASED
     Dosage: 150 MG, TID
     Route: 048
     Dates: start: 20030101, end: 20040101
  2. AFINITOR [Suspect]
     Route: 065
     Dates: start: 20080101

REACTIONS (4)
  - AORTIC BRUIT [None]
  - AORTIC VALVE INCOMPETENCE [None]
  - CARDIAC VALVE DISEASE [None]
  - MITRAL VALVE INCOMPETENCE [None]
